FAERS Safety Report 8568407-9 (Version None)
Quarter: 2012Q3

REPORT INFORMATION
  Report Type: 
  Country: None (occurrence: None)
  Receive Date: 20120803
  Receipt Date: 20120726
  Transmission Date: 20120928
  Serious: No
  Sender: FDA-Public Use
  Company Number: US-ABBOTT-12P-163-0960750-00

PATIENT
  Sex: Female
  Weight: 83.536 kg

DRUGS (7)
  1. COQ10 [Concomitant]
     Indication: SUPPLEMENTATION THERAPY
  2. LOVASTATIN [Concomitant]
     Indication: BLOOD CHOLESTEROL INCREASED
  3. UNKNOWN INHALER [Concomitant]
     Indication: ASTHMA
  4. PAXIL [Concomitant]
     Indication: DEPRESSION
  5. NIASPAN [Suspect]
     Indication: BLOOD CHOLESTEROL INCREASED
     Dates: start: 20120719
  6. METOPROLOL TARTRATE [Concomitant]
     Indication: HYPERTENSION
  7. PROBIOTICS [Concomitant]
     Indication: GASTRIC DISORDER

REACTIONS (3)
  - DIARRHOEA [None]
  - BURNING SENSATION [None]
  - PRURITUS [None]
